FAERS Safety Report 18320329 (Version 2)
Quarter: 2020Q3

REPORT INFORMATION
  Report Type: Spontaneous
  Country: US (occurrence: US)
  Receive Date: 20200928
  Receipt Date: 20200929
  Transmission Date: 20201103
  Serious: Yes (Hospitalization, Other)
  Sender: FDA-Public Use
  Company Number: US-TEVA-2020-US-1832431

PATIENT
  Age: 51 Year
  Sex: Male

DRUGS (4)
  1. DEPAKOTE [Concomitant]
     Active Substance: DIVALPROEX SODIUM
     Route: 065
  2. QUETIAPINE. [Suspect]
     Active Substance: QUETIAPINE
     Indication: AFFECTIVE DISORDER
     Dosage: 125 MILLIGRAM DAILY; 125 MG TOTAL DAILY
     Route: 065
     Dates: start: 2019
  3. QUETIAPINE. [Suspect]
     Active Substance: QUETIAPINE
     Route: 065
     Dates: start: 202009
  4. SYNTHROID [Concomitant]
     Active Substance: LEVOTHYROXINE SODIUM

REACTIONS (17)
  - Mania [Unknown]
  - Hypertension [Unknown]
  - Malaise [Unknown]
  - Adverse event [Unknown]
  - Thyroid function test abnormal [Unknown]
  - Dyspnoea [Unknown]
  - Urinary retention [Unknown]
  - Personal relationship issue [Unknown]
  - Liver disorder [Unknown]
  - Confusional state [Unknown]
  - White blood cell count decreased [Unknown]
  - Chest pain [Unknown]
  - Thyroid hormones decreased [Unknown]
  - Therapeutic product effect incomplete [Unknown]
  - Chest discomfort [Unknown]
  - Constipation [Unknown]
  - Flatulence [Unknown]

NARRATIVE: CASE EVENT DATE: 202003
